FAERS Safety Report 9145597 (Version 1)
Quarter: 2013Q1

REPORT INFORMATION
  Report Type: Spontaneous
  Country: US (occurrence: US)
  Receive Date: 20130307
  Receipt Date: 20130307
  Transmission Date: 20140127
  Serious: No
  Sender: FDA-Public Use
  Company Number: US-PFIZER INC-2013075106

PATIENT
  Age: 48 Year
  Sex: Female
  Weight: 78.46 kg

DRUGS (2)
  1. ZOLOFT [Suspect]
     Indication: MOOD SWINGS
     Dosage: UNK, 1X/DAY
     Dates: start: 201207, end: 201207
  2. CRESTOR [Concomitant]
     Indication: BLOOD CHOLESTEROL ABNORMAL
     Dosage: 10 MG, 1X/DAY

REACTIONS (3)
  - Rash [Recovered/Resolved]
  - Urticaria [Recovered/Resolved]
  - Joint swelling [Recovered/Resolved]
